FAERS Safety Report 9742666 (Version 3)
Quarter: 2015Q3

REPORT INFORMATION
  Report Type: Spontaneous
  Country: US (occurrence: US)
  Receive Date: 20131210
  Receipt Date: 20150804
  Transmission Date: 20151125
  Serious: No
  Sender: FDA-Public Use
  Company Number: US-GILEAD-2009-0025295

PATIENT
  Age: 78 Year
  Sex: Female

DRUGS (8)
  1. LETAIRIS [Suspect]
     Active Substance: AMBRISENTAN
     Indication: PULMONARY ARTERIAL HYPERTENSION
     Route: 048
  2. LASIX [Concomitant]
     Active Substance: FUROSEMIDE
  3. DIGOXIN. [Concomitant]
     Active Substance: DIGOXIN
  4. PRILOSEC [Concomitant]
     Active Substance: OMEPRAZOLE MAGNESIUM
  5. REVATIO [Concomitant]
     Active Substance: SILDENAFIL CITRATE
  6. IRON [Concomitant]
     Active Substance: IRON
  7. POTASSIUM [Concomitant]
     Active Substance: POTASSIUM
  8. FOLIC ACID. [Concomitant]
     Active Substance: FOLIC ACID

REACTIONS (4)
  - Swelling [Unknown]
  - Nausea [Unknown]
  - Fluid retention [Unknown]
  - Weight increased [Unknown]
